FAERS Safety Report 24329104 (Version 7)
Quarter: 2025Q2

REPORT INFORMATION
  Report Type: Other
  Country: US (occurrence: US)
  Receive Date: 20240917
  Receipt Date: 20250522
  Transmission Date: 20250716
  Serious: Yes (Hospitalization)
  Sender: TRAVERE THERAPEUTICS
  Company Number: US-TRAVERE-2024TVT00861

PATIENT
  Age: 70 Year
  Sex: Male

DRUGS (5)
  1. FILSPARI [Suspect]
     Active Substance: SPARSENTAN
     Indication: IgA nephropathy
     Dosage: TAKE 1 TABLET BY MOUTH 1 TIME A DAY FOR DAYS 1-14
     Route: 048
     Dates: start: 202407
  2. FILSPARI [Suspect]
     Active Substance: SPARSENTAN
     Indication: Focal segmental glomerulosclerosis
     Dosage: TAKE 2 TABLETS BY MOUTH 1 TIME A DAY ON DAYS 15-30
     Route: 048
     Dates: start: 202408
  3. FILSPARI [Suspect]
     Active Substance: SPARSENTAN
     Route: 048
  4. SPIRONOLACTONE [Suspect]
     Active Substance: SPIRONOLACTONE
     Indication: Product used for unknown indication
  5. JARDIANCE [Concomitant]
     Active Substance: EMPAGLIFLOZIN

REACTIONS (13)
  - Rib fracture [Unknown]
  - Fracture [Unknown]
  - Hypotension [Unknown]
  - Loss of consciousness [Unknown]
  - Fall [Unknown]
  - Acute kidney injury [Recovered/Resolved]
  - Insomnia [Unknown]
  - Pollakiuria [Unknown]
  - Drug intolerance [None]
  - Gait inability [Recovered/Resolved]
  - Weight increased [Unknown]
  - Fluid retention [None]
  - Eructation [Unknown]

NARRATIVE: CASE EVENT DATE: 20240701
